FAERS Safety Report 9961535 (Version 1)
Quarter: 2014Q1

REPORT INFORMATION
  Report Type: Report from Study
  Country: US (occurrence: US)
  Receive Date: 20140305
  Receipt Date: 20140305
  Transmission Date: 20141002
  Serious: Yes (Hospitalization)
  Sender: FDA-Public Use
  Company Number: US-ACTELION-A-US2014-95505

PATIENT
  Age: 72 Year
  Sex: Female

DRUGS (1)
  1. MACITENTAN [Suspect]
     Indication: PULMONARY ARTERIAL HYPERTENSION
     Dosage: S
     Route: 048
     Dates: start: 20140130

REACTIONS (2)
  - Fall [Unknown]
  - Injury [Unknown]
